FAERS Safety Report 16461874 (Version 1)
Quarter: 2019Q2

REPORT INFORMATION
  Report Type: Spontaneous
  Country: ES (occurrence: ES)
  Receive Date: 20190621
  Receipt Date: 20190621
  Transmission Date: 20190711
  Serious: Yes (Hospitalization, Disabling, Other)
  Sender: FDA-Public Use
  Company Number: ES-SA-2019SA165860

PATIENT
  Age: 55 Year
  Sex: Female

DRUGS (1)
  1. AUBAGIO [Suspect]
     Active Substance: TERIFLUNOMIDE
     Indication: RELAPSING-REMITTING MULTIPLE SCLEROSIS
     Dosage: 14 MG ORAL DIARIO
     Route: 048
     Dates: start: 20180418, end: 20190510

REACTIONS (1)
  - Glioblastoma multiforme [Not Recovered/Not Resolved]

NARRATIVE: CASE EVENT DATE: 20190506
